FAERS Safety Report 4377557-2 (Version None)
Quarter: 2004Q2

REPORT INFORMATION
  Report Type: 
  Country: None (occurrence: None)
  Receive Date: 20040615
  Receipt Date: 20030411
  Transmission Date: 20050107
  Serious: Yes (Hospitalization, Disabling)
  Sender: FDA-Public Use
  Company Number: US-MERCK-0304USA01433

PATIENT
  Age: 64 Year
  Sex: Female
  Weight: 68 kg

DRUGS (6)
  1. VIOXX [Suspect]
     Indication: PHLEBITIS
     Route: 048
     Dates: start: 20010507, end: 20011010
  2. TAMOXIFEN CITRATE [Concomitant]
     Route: 065
  3. VITAMINS (UNSPECIFIED) [Concomitant]
     Route: 065
  4. HYZAAR [Concomitant]
     Indication: HYPERTENSION
     Route: 048
     Dates: start: 19970306
  5. KLOR-CON [Concomitant]
     Indication: MINERAL SUPPLEMENTATION
     Route: 065
  6. VIOXX [Suspect]
     Indication: FIBROMYALGIA
     Route: 048
     Dates: start: 20010507, end: 20011010

REACTIONS (30)
  - ANXIETY [None]
  - ARTERIOSPASM CORONARY [None]
  - ATRIAL FIBRILLATION [None]
  - BACK PAIN [None]
  - BRONCHIAL IRRITATION [None]
  - CARDIAC FAILURE CONGESTIVE [None]
  - CARDIOACTIVE DRUG LEVEL INCREASED [None]
  - CHOLELITHIASIS [None]
  - COLITIS [None]
  - GASTRIC DISORDER [None]
  - GASTROENTERITIS VIRAL [None]
  - GLAUCOMA [None]
  - HEPATIC STEATOSIS [None]
  - HEPATOMEGALY [None]
  - HORMONE LEVEL ABNORMAL [None]
  - MYOCARDIAL INFARCTION [None]
  - NEPHROLITHIASIS [None]
  - OEDEMA PERIPHERAL [None]
  - OESOPHAGEAL SPASM [None]
  - OTITIS MEDIA ACUTE [None]
  - OVERDOSE [None]
  - PAIN IN EXTREMITY [None]
  - PALPITATIONS [None]
  - PHARYNGITIS [None]
  - PRINZMETAL ANGINA [None]
  - ROAD TRAFFIC ACCIDENT [None]
  - SEASONAL ALLERGY [None]
  - STRESS SYMPTOMS [None]
  - TEMPOROMANDIBULAR JOINT SYNDROME [None]
  - VENOUS INSUFFICIENCY [None]
